FAERS Safety Report 7740904-5 (Version None)
Quarter: 2011Q3

REPORT INFORMATION
  Report Type: 
  Country: None (occurrence: None)
  Receive Date: 20110909
  Receipt Date: 20110829
  Transmission Date: 20111222
  Serious: Yes (Death)
  Sender: FDA-Public Use
  Company Number: US-BAYER-201034287NA

PATIENT
  Age: 30 Year
  Sex: Female
  Weight: 76 kg

DRUGS (4)
  1. YASMIN [Suspect]
     Indication: CONTRACEPTION
     Dosage: UNK
     Route: 048
     Dates: start: 20060901, end: 20071101
  2. VENTOLIN HFA [Concomitant]
     Indication: BRONCHIAL HYPERREACTIVITY
     Dosage: UNK
     Dates: start: 20091104
  3. YAZ [Suspect]
     Indication: CONTRACEPTION
     Dosage: UNK UNK, UNK
     Route: 048
     Dates: start: 20060901, end: 20091101
  4. ADVIL LIQUI-GELS [Concomitant]

REACTIONS (6)
  - LOSS OF CONSCIOUSNESS [None]
  - CARDIAC ARREST [None]
  - DYSPNOEA [None]
  - EXERCISE TOLERANCE DECREASED [None]
  - CIRCULATORY COLLAPSE [None]
  - PULMONARY EMBOLISM [None]
